FAERS Safety Report 22089794 (Version 5)
Quarter: 2023Q2

REPORT INFORMATION
  Report Type: Report from Study
  Country: US (occurrence: US)
  Receive Date: 20230313
  Receipt Date: 20230425
  Transmission Date: 20230721
  Serious: Yes (Hospitalization, Other)
  Sender: FDA-Public Use
  Company Number: US-GILEAD-2023-0619786

PATIENT
  Age: 57 Year
  Sex: Female

DRUGS (7)
  1. AMBRISENTAN [Suspect]
     Active Substance: AMBRISENTAN
     Indication: Pulmonary arterial hypertension
     Dosage: 10 MG, QID
     Route: 065
     Dates: start: 20180615
  2. UPTRAVI [Suspect]
     Active Substance: SELEXIPAG
     Indication: Product used for unknown indication
     Dosage: 800 MG, BID
     Route: 065
  3. CIPROFLOXACIN LACTATE [Suspect]
     Active Substance: CIPROFLOXACIN LACTATE
     Indication: Product used for unknown indication
     Route: 065
  4. AMOXICILLIN [Suspect]
     Active Substance: AMOXICILLIN
     Indication: Product used for unknown indication
     Route: 065
  5. ADEMPAS [Concomitant]
     Active Substance: RIOCIGUAT
  6. WARFARIN [Concomitant]
     Active Substance: WARFARIN
  7. SILDENAFIL CITRATE [Concomitant]
     Active Substance: SILDENAFIL CITRATE

REACTIONS (16)
  - Appendicitis [Unknown]
  - Chest pain [Recovered/Resolved]
  - Dyspepsia [Unknown]
  - Drug hypersensitivity [Unknown]
  - Nausea [Recovered/Resolved]
  - Decreased appetite [Recovered/Resolved]
  - Taste disorder [Unknown]
  - Fatigue [Not Recovered/Not Resolved]
  - Balance disorder [Unknown]
  - Asthenia [Unknown]
  - Hypotension [Unknown]
  - Abdominal pain upper [Unknown]
  - Dry mouth [Recovered/Resolved]
  - Diarrhoea [Recovered/Resolved]
  - Weight decreased [Unknown]
  - Pain [Unknown]

NARRATIVE: CASE EVENT DATE: 20230301
